FAERS Safety Report 6455314-0 (Version None)
Quarter: 2009Q4

REPORT INFORMATION
  Report Type: 
  Country: None (occurrence: None)
  Receive Date: 20091125
  Receipt Date: 20091026
  Transmission Date: 20100525
  Serious: No
  Sender: FDA-Public Use
  Company Number: US-ABBOTT-09P-163-0605508-00

PATIENT
  Sex: Female
  Weight: 52.664 kg

DRUGS (3)
  1. SIMCOR [Suspect]
     Indication: DRUG USE FOR UNKNOWN INDICATION
     Dosage: 500/20
     Dates: start: 20090928
  2. AQUINEL [Concomitant]
     Indication: DRUG USE FOR UNKNOWN INDICATION
  3. HORMONE PILL [Concomitant]
     Indication: DRUG USE FOR UNKNOWN INDICATION

REACTIONS (2)
  - PAIN OF SKIN [None]
  - RASH ERYTHEMATOUS [None]
